FAERS Safety Report 4334314-0 (Version None)
Quarter: 2004Q2

REPORT INFORMATION
  Report Type: 
  Country: None (occurrence: None)
  Receive Date: 20040405
  Receipt Date: 20040319
  Transmission Date: 20050107
  Serious: Yes (Other)
  Sender: FDA-Public Use
  Company Number: A0503608A

PATIENT
  Age: 56 Year
  Sex: Female
  Weight: 119.2507 kg

DRUGS (1)
  1. NICORETTE [Suspect]
     Indication: EX-SMOKER
     Dosage: 4 MG / FOURTEEN TIMES PER DAY / TR
     Dates: start: 19980101

REACTIONS (3)
  - DRUG DEPENDENCE [None]
  - FEAR [None]
  - NAUSEA [None]
